FAERS Safety Report 25741968 (Version 1)
Quarter: 2025Q3

REPORT INFORMATION
  Report Type: Spontaneous
  Country: US (occurrence: None)
  Receive Date: 20250829
  Receipt Date: 20250829
  Transmission Date: 20251021
  Serious: No
  Sender: FDA-CTU
  Company Number: None

PATIENT
  Age: 74 Year
  Sex: Male
  Weight: 94.5 kg

DRUGS (1)
  1. DABIGATRAN [Suspect]
     Active Substance: DABIGATRAN
     Indication: Product packaging issue
     Dosage: 1 CAPSULE(S) TWICE A DAY ORAL
     Route: 048

REACTIONS (1)
  - Product design issue [None]

NARRATIVE: CASE EVENT DATE: 20250829
